FAERS Safety Report 8239764-8 (Version None)
Quarter: 2012Q1

REPORT INFORMATION
  Report Type: 
  Country: None (occurrence: None)
  Receive Date: 20120328
  Receipt Date: 20120321
  Transmission Date: 20120608
  Serious: Yes (Hospitalization, Other)
  Sender: FDA-Public Use
  Company Number: CA-AMGEN-CANSP2011044933

PATIENT
  Age: 67 Year
  Sex: Male

DRUGS (9)
  1. ENBREL [Suspect]
     Indication: RHEUMATOID ARTHRITIS
     Dosage: 50 MG, QWK
     Route: 058
     Dates: start: 20100928, end: 20110825
  2. ENBREL [Suspect]
     Dosage: 50 MG, QWK
     Dates: start: 20090505, end: 20090101
  3. ASPIRIN [Concomitant]
     Dosage: UNK
  4. CALCIUM CARBONATE [Concomitant]
     Dosage: UNK
  5. VITAMIN D [Concomitant]
     Dosage: UNK
  6. VITAMIN C                          /00008001/ [Concomitant]
     Dosage: UNK
  7. SULFASALAZINE [Concomitant]
     Dosage: UNK
     Dates: start: 20110825
  8. DIOVAN [Concomitant]
     Dosage: UNK
  9. FISH OIL [Concomitant]
     Dosage: UNK

REACTIONS (8)
  - ABDOMINAL ABSCESS [None]
  - IMPAIRED HEALING [None]
  - CHOLECYSTITIS INFECTIVE [None]
  - SUBCUTANEOUS ABSCESS [None]
  - CHOLELITHIASIS [None]
  - SEPSIS [None]
  - INCISION SITE INFECTION [None]
  - ARTHRITIS [None]
